FAERS Safety Report 10394375 (Version 4)
Quarter: 2014Q4

REPORT INFORMATION
  Report Type: Report from Study
  Country: US (occurrence: US)
  Receive Date: 20140819
  Receipt Date: 20141010
  Transmission Date: 20150528
  Serious: Yes (Other)
  Sender: FDA-Public Use
  Company Number: US-ABBVIE-14P-163-1272114-00

PATIENT
  Age: 30 Year
  Sex: Female
  Weight: 71.73 kg

DRUGS (17)
  1. PREDNISONE. [Concomitant]
     Active Substance: PREDNISONE
     Indication: PRODUCT USED FOR UNKNOWN INDICATION
     Dosage: STARTED PRE-HUMIRA
     Dates: end: 201407
  2. PROTONIX [Concomitant]
     Active Substance: PANTOPRAZOLE SODIUM
     Indication: GASTROOESOPHAGEAL REFLUX DISEASE
  3. ESSURE BIRTH CONTROL DEVICE [Concomitant]
     Indication: CONTRACEPTION
     Dates: start: 2012
  4. FOLIC ACID. [Concomitant]
     Active Substance: FOLIC ACID
     Indication: ALOPECIA
     Dosage: DAILY
  5. CELEXA [Concomitant]
     Active Substance: CITALOPRAM HYDROBROMIDE
     Indication: ANXIETY
     Dosage: DAILY
     Dates: start: 2014
  6. NORCO [Concomitant]
     Active Substance: ACETAMINOPHEN\HYDROCODONE BITARTRATE
     Indication: COLITIS ULCERATIVE
     Dosage: 10/325 MG
  7. DEXILANT [Concomitant]
     Active Substance: DEXLANSOPRAZOLE
     Indication: COLITIS ULCERATIVE
     Dates: start: 201407
  8. PROTONIX [Concomitant]
     Active Substance: PANTOPRAZOLE SODIUM
     Indication: COLITIS ULCERATIVE
     Dates: start: 20140809
  9. NEXIUM [Concomitant]
     Active Substance: ESOMEPRAZOLE MAGNESIUM
     Indication: PRODUCT USED FOR UNKNOWN INDICATION
     Dates: end: 201407
  10. LIALDA [Concomitant]
     Active Substance: MESALAMINE
     Indication: COLITIS ULCERATIVE
  11. VITAMIN D [Concomitant]
     Active Substance: CHOLECALCIFEROL
     Indication: COLITIS ULCERATIVE
  12. HUMIRA [Suspect]
     Active Substance: ADALIMUMAB
     Route: 058
     Dates: start: 20140629, end: 20140629
  13. LEXAPRO [Concomitant]
     Active Substance: ESCITALOPRAM OXALATE
     Indication: COLITIS ULCERATIVE
     Dates: end: 2014
  14. HUMIRA [Suspect]
     Active Substance: ADALIMUMAB
     Indication: COLITIS ULCERATIVE
     Route: 058
     Dates: start: 20140615, end: 20140615
  15. HUMIRA [Suspect]
     Active Substance: ADALIMUMAB
     Route: 058
     Dates: start: 20140713, end: 201408
  16. HUMIRA [Suspect]
     Active Substance: ADALIMUMAB
     Route: 058
     Dates: start: 2014
  17. PROBIOTICS NOS [Concomitant]
     Active Substance: PROBIOTICS NOS
     Indication: COLITIS ULCERATIVE
     Dosage: DAILY

REACTIONS (9)
  - Arthralgia [Recovering/Resolving]
  - Systemic lupus erythematosus [Recovered/Resolved]
  - Speech disorder [Unknown]
  - Erythema [Unknown]
  - Pain [Recovered/Resolved]
  - Haemoglobin decreased [Unknown]
  - Mobility decreased [Recovered/Resolved]
  - Tremor [Unknown]
  - Musculoskeletal stiffness [Recovered/Resolved]

NARRATIVE: CASE EVENT DATE: 2014
